FAERS Safety Report 20153560 (Version 4)
Quarter: 2022Q1

REPORT INFORMATION
  Report Type: Report from Study
  Country: DE (occurrence: DE)
  Receive Date: 20211206
  Receipt Date: 20220225
  Transmission Date: 20220424
  Serious: Yes (Other)
  Sender: FDA-Public Use
  Company Number: DE-ABBVIE-21K-062-4185256-00

PATIENT
  Age: 60 Year
  Sex: Male

DRUGS (15)
  1. SKYRIZI [Suspect]
     Active Substance: RISANKIZUMAB-RZAA
     Indication: Psoriasis
     Dosage: AT WEEK 0 AND 4
     Route: 058
     Dates: start: 20201203, end: 20201229
  2. SKYRIZI [Suspect]
     Active Substance: RISANKIZUMAB-RZAA
     Route: 058
     Dates: start: 20201229
  3. SKYRIZI [Suspect]
     Active Substance: RISANKIZUMAB-RZAA
     Route: 058
     Dates: start: 20210323
  4. ENSTILAR [Concomitant]
     Active Substance: BETAMETHASONE DIPROPIONATE\CALCIPOTRIENE HYDRATE
     Indication: Psoriasis
     Dosage: 1 APPLICATION; ROUTE: TOPIC/SKIN/DERMAL SPRAY
     Route: 065
     Dates: start: 20200910
  5. AC7 KOMPLEX [Concomitant]
     Indication: Nutritional supplementation
     Route: 048
     Dates: start: 20201118
  6. MORONAL V [Concomitant]
     Indication: Frequent bowel movements
     Dosage: 2 MORNING, 2 AFTERNOON, 2 NIGHT
     Route: 048
     Dates: start: 20201118
  7. MULTILIND [Concomitant]
     Indication: Intertrigo
     Dosage: 1 APPLICATION; ROUTE: TOPIC/SKIN/DERMAL SPRAY
     Dates: start: 20201211, end: 20201231
  8. CURATODERM [Concomitant]
     Indication: Psoriasis
     Dosage: 1 APPLICATION, ROUTE: TOPIC/SKIN/DERMAL SPRAY
     Dates: start: 20210323, end: 20210407
  9. CURATODERM [Concomitant]
     Dosage: 1 APPLICATION TOPIC / SKIN / DERMAL SPRAY, EMULSION
     Dates: start: 20211130
  10. CANDIO HERMAL [Concomitant]
     Indication: Intertrigo
     Dosage: 1 APPLICATION; ROUTE: TOPIC/SKIN/DERMAL SPRAY
     Dates: start: 20201229, end: 20201231
  11. ESCHERICHIA COLI [Concomitant]
     Active Substance: ESCHERICHIA COLI
     Indication: Frequent bowel movements
     Route: 048
     Dates: start: 20210303, end: 20210531
  12. ITRACONAZOLE [Concomitant]
     Active Substance: ITRACONAZOLE
     Indication: Gastrointestinal candidiasis
     Route: 048
     Dates: start: 20210714, end: 20210811
  13. OMNI BIOTIC 6 [Concomitant]
     Indication: Product used for unknown indication
     Route: 065
  14. CURATODERM [Concomitant]
     Indication: Psoriasis
     Dosage: EMULSION, 1 APPLICATION TOPICAL/SKIN/DERMAL SPRAY
     Route: 065
     Dates: start: 20211130
  15. OMNI BIOTIC AB 10 [Concomitant]
     Indication: Dysbiosis
     Route: 048
     Dates: start: 20211027

REACTIONS (1)
  - Cataract [Recovered/Resolved]

NARRATIVE: CASE EVENT DATE: 20211025
